FAERS Safety Report 21987660 (Version 2)
Quarter: 2023Q1

REPORT INFORMATION
  Report Type: Spontaneous
  Country: US (occurrence: US)
  Receive Date: 20230214
  Receipt Date: 20230217
  Transmission Date: 20230417
  Serious: Yes (Other)
  Sender: FDA-Public Use
  Company Number: US-PROCTER+GAMBLE-PH23001242

PATIENT
  Sex: Male

DRUGS (3)
  1. DAYQUIL NOS [Suspect]
     Active Substance: ACETAMINOPHEN\BROMPHENIRAMINE\CHLORPHENIRAMINE\DEXTROMETHORPHAN\GUAIFENESIN\IBUPROFEN\PHENYLEPHRINE\
     Dosage: DRANK 1/4 A BOTTLE OF DAYQUIL
     Route: 048
  2. VICKS NYQUIL [Suspect]
     Active Substance: ACETAMINOPHEN\DEXTROMETHORPHAN HYDROBROMIDE\DOXYLAMINE SUCCINATE
     Dosage: DRANK 1/4 BOTTLE OF NYQUIL
     Route: 048
  3. HALLS HONEY LEMON [Suspect]
     Active Substance: MENTHOL
     Dosage: 15 COUGH DROPS
     Route: 048

REACTIONS (4)
  - Loss of consciousness [Unknown]
  - Blindness [Unknown]
  - Overdose [Unknown]
  - Drug ineffective [Unknown]
